FAERS Safety Report 4682425-2 (Version None)
Quarter: 2005Q2

REPORT INFORMATION
  Report Type: 
  Country: None (occurrence: None)
  Receive Date: 20050531
  Receipt Date: 20050220
  Transmission Date: 20051028
  Serious: No
  Sender: FDA-Public Use
  Company Number: 2005BI004329

PATIENT

DRUGS (6)
  1. AMEVIVE [Suspect]
     Indication: PSORIASIS
     Dosage: 15 MG; QW; IM
     Route: 030
     Dates: start: 20041014, end: 20041228
  2. ORTHO TRI-CYCLEN [Concomitant]
  3. FISH OIL [Concomitant]
  4. VITAMIN A [Concomitant]
  5. VITAMIN D [Concomitant]
  6. ZINC [Concomitant]

REACTIONS (1)
  - DERMATITIS ATOPIC [None]
